FAERS Safety Report 9762716 (Version 6)
Quarter: 2014Q1

REPORT INFORMATION
  Report Type: Report from Study
  Country: FR (occurrence: FR)
  Receive Date: 20131216
  Receipt Date: 20140312
  Transmission Date: 20141002
  Serious: Yes (Hospitalization)
  Sender: FDA-Public Use
  Company Number: PHHY2013FR145964

PATIENT
  Age: 77 Year
  Sex: Male
  Weight: 82 kg

DRUGS (7)
  1. TASIGNA [Suspect]
     Indication: CHRONIC MYELOID LEUKAEMIA
     Dosage: 800 MG, DAILY
     Route: 048
     Dates: start: 20120307, end: 20120713
  2. TASIGNA [Suspect]
     Dosage: 600 MG, DAILY
     Route: 048
     Dates: start: 20120713, end: 20131016
  3. NOVOMIX 30 [Concomitant]
     Indication: DIABETES MELLITUS
     Dosage: 48 U, QD
     Route: 058
     Dates: start: 201209
  4. BAYPRESS [Concomitant]
     Indication: HYPERTENSION
     Dosage: 20 MG, QD
     Route: 048
  5. DIAMICRON [Concomitant]
     Indication: TYPE 2 DIABETES MELLITUS
     Dosage: 30 MG, QD
     Dates: start: 2010, end: 201209
  6. PERINDOPRIL [Concomitant]
     Dosage: 2 MG
  7. FLUOXETINE [Concomitant]
     Dosage: 20 MG

REACTIONS (1)
  - Ischaemic stroke [Recovered/Resolved with Sequelae]
